FAERS Safety Report 25347453 (Version 1)
Quarter: 2025Q2

REPORT INFORMATION
  Report Type: Other
  Country: US (occurrence: KR)
  Receive Date: 20250522
  Receipt Date: 20250522
  Transmission Date: 20250717
  Serious: Yes (Hospitalization)
  Sender: SAPTALIS PHARMACEUTICALS LLC
  Company Number: KR-Saptalis Pharmaceuticals LLC-2176242

PATIENT
  Age: 46 Year
  Sex: Female

DRUGS (3)
  1. FLUOXETINE HYDROCHLORIDE [Suspect]
     Active Substance: FLUOXETINE HYDROCHLORIDE
  2. PHENTERMINE [Concomitant]
     Active Substance: PHENTERMINE
  3. TOPIRAMATE [Concomitant]
     Active Substance: TOPIRAMATE

REACTIONS (5)
  - Serotonin syndrome [Recovered/Resolved]
  - Cardiomyopathy [Recovered/Resolved]
  - Pulmonary embolism [Recovered/Resolved]
  - Rhabdomyolysis [Recovered/Resolved]
  - Hypoxia [Recovered/Resolved]
